FAERS Safety Report 12301402 (Version 1)
Quarter: 2016Q2

REPORT INFORMATION
  Report Type: Spontaneous
  Country: CH (occurrence: CH)
  Receive Date: 20160425
  Receipt Date: 20160425
  Transmission Date: 20160815
  Serious: Yes (Hospitalization)
  Sender: FDA-Public Use
  Company Number: CH-MEDA-2016040064

PATIENT
  Age: 73 Year
  Sex: Female

DRUGS (15)
  1. TOREM [Suspect]
     Active Substance: TORSEMIDE
     Route: 048
     Dates: start: 201512, end: 20160324
  2. KEPPRA [Suspect]
     Active Substance: LEVETIRACETAM
     Indication: EPILEPSY
     Route: 048
  3. ASPIRIN CARDIO [Concomitant]
     Active Substance: ASPIRIN
     Dosage: 100 MG IN THE MORNING
     Route: 048
  4. ENATEC [Concomitant]
     Active Substance: ENALAPRIL MALEATE
     Route: 048
  5. LIORESAL [Concomitant]
     Active Substance: BACLOFEN
     Dosage: 25 MG AT BEDTIME
     Route: 048
  6. CARVEDILOL. [Concomitant]
     Active Substance: CARVEDILOL
     Route: 048
  7. TOREM [Suspect]
     Active Substance: TORSEMIDE
     Route: 048
     Dates: start: 201512, end: 20160324
  8. REMERON [Suspect]
     Active Substance: MIRTAZAPINE
     Indication: DEPRESSION
     Dosage: ONCE DAILY AT BEDTIME
     Route: 048
     Dates: start: 2016, end: 20160324
  9. EUTHYROX [Concomitant]
     Active Substance: LEVOTHYROXINE SODIUM
     Route: 048
  10. DETRUSITOL [Concomitant]
     Active Substance: TOLTERODINE TARTRATE
     Dosage: 4 MG IN THE MORNING
  11. LYRICA [Concomitant]
     Active Substance: PREGABALIN
     Dosage: 25 MG ONCE IN THE EVENING
     Route: 048
  12. TEMESTA [Concomitant]
     Active Substance: LORAZEPAM
     Route: 048
  13. CALCIMAGON-D3 [Concomitant]
     Active Substance: CALCIUM\CHOLECALCIFEROL
     Route: 048
  14. VI-DE 3 [Concomitant]
     Active Substance: CHOLECALCIFEROL
     Route: 048
  15. STILNOX CP [Concomitant]
     Route: 048

REACTIONS (1)
  - Inappropriate antidiuretic hormone secretion [Recovered/Resolved]

NARRATIVE: CASE EVENT DATE: 20160325
